FAERS Safety Report 4591974-7 (Version None)
Quarter: 2005Q1

REPORT INFORMATION
  Report Type: 
  Country: None (occurrence: None)
  Receive Date: 20050125
  Receipt Date: 20041007
  Transmission Date: 20050727
  Serious: No
  Sender: FDA-Public Use
  Company Number: USA040875070

PATIENT
  Age: 86 Year
  Sex: Female
  Weight: 44 kg

DRUGS (6)
  1. FORTEO [Suspect]
     Indication: OSTEOPOROSIS
     Dates: start: 20040806
  2. NORVASC [Concomitant]
  3. LIPITOR [Concomitant]
  4. ASPIRIN [Concomitant]
  5. CALCIUM CARBONATE [Concomitant]
  6. ATIVAN [Concomitant]

REACTIONS (4)
  - ABDOMINAL PAIN UPPER [None]
  - DIZZINESS [None]
  - INJECTION SITE ERYTHEMA [None]
  - VERTIGO [None]
